FAERS Safety Report 17371570 (Version 1)
Quarter: 2020Q1

REPORT INFORMATION
  Report Type: Spontaneous
  Country: IT (occurrence: IT)
  Receive Date: 20200205
  Receipt Date: 20200205
  Transmission Date: 20200409
  Serious: Yes (Hospitalization)
  Sender: FDA-Public Use
  Company Number: IT-ACCORD-171735

PATIENT
  Age: 76 Year
  Sex: Male

DRUGS (3)
  1. FLUOROURACILE HIKMA [Suspect]
     Active Substance: FLUOROURACIL
     Indication: HEPATIC NEOPLASM
     Dates: start: 20190129, end: 20191121
  2. IRINOTECAN ACCORD [Suspect]
     Active Substance: IRINOTECAN
     Indication: HEPATIC NEOPLASM
     Dosage: STRENGTH-20 MG / ML
     Route: 042
     Dates: start: 20190227, end: 20191121
  3. OXALIPLATIN KABI [Suspect]
     Active Substance: OXALIPLATIN
     Indication: HEPATIC NEOPLASM
     Route: 042
     Dates: start: 20190129, end: 20190212

REACTIONS (3)
  - Loss of consciousness [Recovering/Resolving]
  - Pyrexia [Recovering/Resolving]
  - Feeling cold [Recovering/Resolving]

NARRATIVE: CASE EVENT DATE: 20190327
